FAERS Safety Report 7980532-X (Version None)
Quarter: 2011Q4

REPORT INFORMATION
  Report Type: 
  Country: None (occurrence: None)
  Receive Date: 20111214
  Receipt Date: 20111205
  Transmission Date: 20120403
  Serious: Yes (Death, Hospitalization)
  Sender: FDA-Public Use
  Company Number: FR-GLAXOSMITHKLINE-B0768771A

PATIENT
  Age: 30 Year
  Sex: Female

DRUGS (2)
  1. CLOBETASOL PROPIONATE [Suspect]
     Indication: PUSTULAR PSORIASIS
     Dosage: 40G PER DAY
     Route: 065
  2. ACITRETIN [Concomitant]

REACTIONS (4)
  - LYMPHOPENIA [None]
  - RESPIRATORY DISTRESS [None]
  - SHOCK [None]
  - DEATH [None]
